FAERS Safety Report 9671247 (Version 1)
Quarter: 2013Q4

REPORT INFORMATION
  Report Type: Spontaneous
  Country: NL (occurrence: NL)
  Receive Date: 20131106
  Receipt Date: 20131106
  Transmission Date: 20140711
  Serious: Yes (Hospitalization)
  Sender: FDA-Public Use
  Company Number: NL-AMGEN-NLDSP2013077569

PATIENT
  Age: 65 Year
  Sex: Male

DRUGS (2)
  1. XGEVA [Suspect]
     Indication: PRODUCT USED FOR UNKNOWN INDICATION
     Dosage: 120, Q4WK
     Route: 058
     Dates: start: 20130606
  2. CALCI CHEW D3 [Concomitant]
     Dosage: 500 MG/400IE, UNK

REACTIONS (1)
  - Hospitalisation [Unknown]
